FAERS Safety Report 6097354-X (Version None)
Quarter: 2009Q1

REPORT INFORMATION
  Report Type: 
  Country: None (occurrence: None)
  Receive Date: 20090226
  Receipt Date: 20090226
  Transmission Date: 20090719
  Serious: Yes (Other)
  Sender: FDA-Public Use
  Company Number: None

PATIENT
  Age: 56 Year
  Sex: Female
  Weight: 79.3795 kg

DRUGS (1)
  1. TEMAZEPAM [Suspect]
     Indication: INSOMNIA
     Dosage: 1 CAP AT BEDTIME 1
     Dates: start: 20090215, end: 20090222

REACTIONS (3)
  - GENERAL PHYSICAL HEALTH DETERIORATION [None]
  - PANIC ATTACK [None]
  - TREMOR [None]
